FAERS Safety Report 24777307 (Version 1)
Quarter: 2024Q4

REPORT INFORMATION
  Report Type: Spontaneous
  Country: US (occurrence: US)
  Receive Date: 20241226
  Receipt Date: 20241226
  Transmission Date: 20250114
  Serious: Yes (Life-Threatening, Hospitalization)
  Sender: MYLAN
  Company Number: US-MYLANLABS-2024M1113778

PATIENT
  Age: 79 Year
  Sex: Female

DRUGS (1)
  1. METHIMAZOLE [Suspect]
     Active Substance: METHIMAZOLE
     Indication: Hyperthyroidism
     Dosage: UNK
     Route: 065

REACTIONS (4)
  - Agranulocytosis [Recovering/Resolving]
  - Thrombocytopenia [Recovering/Resolving]
  - Septic shock [Recovering/Resolving]
  - Pseudomonas infection [Recovering/Resolving]
